FAERS Safety Report 6772864-8 (Version None)
Quarter: 2010Q2

REPORT INFORMATION
  Report Type: 
  Country: None (occurrence: None)
  Receive Date: 20100616
  Receipt Date: 20100608
  Transmission Date: 20101027
  Serious: Yes (Hospitalization)
  Sender: FDA-Public Use
  Company Number: JP-ASTRAZENECA-2010SE19017

PATIENT
  Age: 24463 Day
  Sex: Female

DRUGS (9)
  1. CRESTOR [Suspect]
     Indication: HYPERLIPIDAEMIA
     Route: 048
     Dates: start: 20100215, end: 20100421
  2. COCARL [Suspect]
     Indication: NASOPHARYNGITIS
     Route: 048
     Dates: end: 20100421
  3. DASEN [Suspect]
     Indication: NASOPHARYNGITIS
     Route: 048
     Dates: end: 20100421
  4. COMELIAN [Concomitant]
     Indication: RENAL FAILURE CHRONIC
     Route: 048
     Dates: start: 20040315, end: 20100421
  5. URINORM [Concomitant]
     Indication: HYPERURICAEMIA
     Route: 048
     Dates: start: 20080310, end: 20100421
  6. BIOFERMIN R [Concomitant]
     Indication: NASOPHARYNGITIS
     Dosage: THREE TIMES A DAY.
     Route: 048
     Dates: end: 20100421
  7. AMLODIN [Concomitant]
     Indication: HYPERTENSION
     Route: 048
     Dates: end: 20100421
  8. FLOMOX [Concomitant]
     Indication: NASOPHARYNGITIS
     Route: 048
     Dates: start: 20100420, end: 20100421
  9. THYRADIN S [Concomitant]
     Indication: HYPOTHYROIDISM
     Route: 048

REACTIONS (4)
  - DEPRESSED LEVEL OF CONSCIOUSNESS [None]
  - PYREXIA [None]
  - RHABDOMYOLYSIS [None]
  - STEVENS-JOHNSON SYNDROME [None]
